FAERS Safety Report 11262786 (Version 2)
Quarter: 2015Q4

REPORT INFORMATION
  Report Type: Spontaneous
  Country: AR (occurrence: AR)
  Receive Date: 20150710
  Receipt Date: 20151210
  Transmission Date: 20160304
  Serious: Yes (Death, Life-Threatening, Hospitalization)
  Sender: FDA-Public Use
  Company Number: AR-B.I. PHARMACEUTICALS,INC./RIDGEFIELD-2015-BI-37312RA

PATIENT
  Age: 72 Year
  Sex: Female

DRUGS (1)
  1. GILOTRIF [Suspect]
     Active Substance: AFATINIB
     Indication: NON-SMALL CELL LUNG CANCER
     Route: 048
     Dates: start: 20150302

REACTIONS (5)
  - General physical health deterioration [Fatal]
  - Nausea [Fatal]
  - Fluid intake reduced [Fatal]
  - Prerenal failure [Fatal]
  - Vomiting [Fatal]

NARRATIVE: CASE EVENT DATE: 20150424
